FAERS Safety Report 15559608 (Version 1)
Quarter: 2018Q4

REPORT INFORMATION
  Report Type: Spontaneous
  Country: US (occurrence: US)
  Receive Date: 20181029
  Receipt Date: 20181029
  Transmission Date: 20190205
  Serious: No
  Sender: FDA-Public Use
  Company Number: US-AUROBINDO-AUR-APU-2017-41683

PATIENT
  Sex: Female
  Weight: 73 kg

DRUGS (1)
  1. METOPROLOL TARTRATE FILM COATED TABLETS USP 50 MG [Suspect]
     Active Substance: METOPROLOL TARTRATE
     Indication: HYPERTENSION
     Dosage: 50 MG, TWO TIMES A DAY
     Route: 065

REACTIONS (1)
  - Drug ineffective [Not Recovered/Not Resolved]
